FAERS Safety Report 12246784 (Version 1)
Quarter: 2016Q2

REPORT INFORMATION
  Report Type: Spontaneous
  Country: US (occurrence: US)
  Receive Date: 20160407
  Receipt Date: 20160407
  Transmission Date: 20160815
  Serious: No
  Sender: FDA-Public Use
  Company Number: US-PFIZER INC-2016154683

PATIENT
  Age: 55 Year
  Sex: Female
  Weight: 57 kg

DRUGS (3)
  1. LYRICA [Suspect]
     Active Substance: PREGABALIN
     Dosage: 50 MG, 2X/DAY, IN THE MORNING AND IN THE EVENING
     Dates: end: 201603
  2. AMITRIPTYLINE [Concomitant]
     Active Substance: AMITRIPTYLINE
     Indication: SLEEP DISORDER
     Dosage: 30 MG, UNK
     Dates: start: 1999
  3. LYRICA [Suspect]
     Active Substance: PREGABALIN
     Indication: FIBROMYALGIA
     Dosage: 100 MG, 2X/DAY, TWO 50MG CAPSULES IN THE MORNING AND TWO IN THE EVENING
     Dates: start: 201408

REACTIONS (9)
  - Product use issue [Unknown]
  - Feeling abnormal [Unknown]
  - Musculoskeletal stiffness [Unknown]
  - Drug withdrawal syndrome [Recovering/Resolving]
  - Nervousness [Recovering/Resolving]
  - Drug withdrawal syndrome [Unknown]
  - Pain [Not Recovered/Not Resolved]
  - Condition aggravated [Not Recovered/Not Resolved]
  - Retching [Recovering/Resolving]

NARRATIVE: CASE EVENT DATE: 201408
